FAERS Safety Report 8190121-2 (Version None)
Quarter: 2012Q1

REPORT INFORMATION
  Report Type: 
  Country: None (occurrence: None)
  Receive Date: 20120221
  Receipt Date: 20120105
  Transmission Date: 20120608
  Serious: No
  Sender: FDA-Public Use
  Company Number: 1000026748

PATIENT
  Age: 75 Year
  Sex: Male

DRUGS (7)
  1. REMERON [Concomitant]
  2. ATIVAN [Concomitant]
  3. VIIBRYD [Suspect]
     Indication: DEPRESSION
     Dosage: 60 MG (60 MG, 1 IN 1 D),ORAL; 40 MG (40 MG, 1 IN 1 D), ORAL
     Route: 048
     Dates: start: 20111031, end: 20111218
  4. VIIBRYD [Suspect]
     Indication: DEPRESSION
     Dosage: 60 MG (60 MG, 1 IN 1 D),ORAL; 40 MG (40 MG, 1 IN 1 D), ORAL
     Route: 048
     Dates: start: 20111219
  5. VIIBRYD [Suspect]
     Indication: DEPRESSION
     Dosage: 10 MG (10 MG, 1 IN 1 D), ORAL; 20 MG (20 MG, 1 IN 1 D), ORAL; 40 MG (40 MG, 1 IN 1 D),ORAL
     Route: 048
     Dates: start: 20110926, end: 20111002
  6. VIIBRYD [Suspect]
     Indication: DEPRESSION
     Dosage: 10 MG (10 MG, 1 IN 1 D), ORAL; 20 MG (20 MG, 1 IN 1 D), ORAL; 40 MG (40 MG, 1 IN 1 D),ORAL
     Route: 048
     Dates: start: 20111003, end: 20111009
  7. VIIBRYD [Suspect]
     Indication: DEPRESSION
     Dosage: 10 MG (10 MG, 1 IN 1 D), ORAL; 20 MG (20 MG, 1 IN 1 D), ORAL; 40 MG (40 MG, 1 IN 1 D),ORAL
     Route: 048
     Dates: start: 20111010, end: 20111030

REACTIONS (2)
  - OVERDOSE [None]
  - RASH [None]
